FAERS Safety Report 9926058 (Version 2)
Quarter: 2014Q1

REPORT INFORMATION
  Report Type: Report from Study
  Country: CA (occurrence: CA)
  Receive Date: 20140226
  Receipt Date: 20140307
  Transmission Date: 20141002
  Serious: Yes (Life-Threatening, Hospitalization, Disabling)
  Sender: FDA-Public Use
  Company Number: PHHY2014CA023121

PATIENT
  Age: 83 Year
  Sex: Female

DRUGS (10)
  1. ACLASTA [Suspect]
     Indication: OSTEITIS DEFORMANS
     Dosage: 5 MG, ONCE A YEAR
     Route: 042
     Dates: start: 20120326
  2. ACLASTA [Suspect]
     Indication: BONE PAIN
     Dosage: 5 MG, ONCE A YEAR
     Route: 042
     Dates: start: 20130402
  3. INSULINE NPH [Concomitant]
     Dosage: UNK UKN, UNK
  4. CRESTOR [Concomitant]
     Dosage: UNK UKN, UNK
  5. COVERSYL                                /FRA/ [Concomitant]
     Dosage: UNK UKN, UNK
  6. NORVASC [Concomitant]
     Dosage: 5 AND 2.5 MG
  7. AAS [Concomitant]
     Dosage: UNK UKN, UNK
  8. LASIX [Concomitant]
     Dosage: 40 MG-20 MG
  9. D TABS [Concomitant]
     Dosage: 10000 U, UNK
  10. LYRICA [Concomitant]
     Dosage: 25 MG, PRN

REACTIONS (8)
  - Colorectal adenocarcinoma [Not Recovered/Not Resolved]
  - Asthenia [Not Recovered/Not Resolved]
  - Rectal haemorrhage [Not Recovered/Not Resolved]
  - Weight decreased [Not Recovered/Not Resolved]
  - Abdominal pain [Not Recovered/Not Resolved]
  - Enteritis [Not Recovered/Not Resolved]
  - Decreased appetite [Not Recovered/Not Resolved]
  - Hypoglycaemia [Not Recovered/Not Resolved]
